FAERS Safety Report 8094512-X (Version None)
Quarter: 2012Q1

REPORT INFORMATION
  Report Type: 
  Country: None (occurrence: None)
  Receive Date: 20120131
  Receipt Date: 20120120
  Transmission Date: 20120608
  Serious: Yes (Other)
  Sender: FDA-Public Use
  Company Number: CA-JNJFOC-20111108970

PATIENT
  Age: 55 Year
  Sex: Male
  Weight: 116 kg

DRUGS (8)
  1. MAGNESIUM CITRATE [Concomitant]
  2. METRONIDAZOLE [Concomitant]
  3. TRAMADOL HYDROCHLORIDE/ACETAMINOPHEN [Concomitant]
  4. HERBAL PREPARATION [Concomitant]
  5. CALCIUM CARBONATE [Concomitant]
  6. CYCLOBENZAPRINE [Concomitant]
  7. XARELTO [Suspect]
     Indication: THROMBOSIS PROPHYLAXIS
     Route: 048
     Dates: start: 20110531, end: 20110608
  8. MINOCYCLINE HCL [Concomitant]

REACTIONS (1)
  - DEEP VEIN THROMBOSIS [None]
